FAERS Safety Report 4882338-7 (Version None)
Quarter: 2005Q4

REPORT INFORMATION
  Report Type: 
  Country: None (occurrence: None)
  Receive Date: 20051223
  Receipt Date: 20050908
  Transmission Date: 20060501
  Serious: No
  Sender: FDA-Public Use
  Company Number: 05P-163-0310509-00

PATIENT
  Age: 56 Year
  Sex: Female
  Weight: 92.9874 kg

DRUGS (11)
  1. HUMIRA [Suspect]
     Indication: RHEUMATOID ARTHRITIS
     Dosage: 40 MG, 1 IN 2 WK, SUBCUTANEOUS ; 40 MG, 1 IN 1 WK, SUBCUTANEOUS
     Route: 058
     Dates: start: 20030101, end: 20050831
  2. HUMIRA [Suspect]
     Indication: RHEUMATOID ARTHRITIS
     Dosage: 40 MG, 1 IN 2 WK, SUBCUTANEOUS ; 40 MG, 1 IN 1 WK, SUBCUTANEOUS
     Route: 058
     Dates: start: 20050904
  3. KARVEA HCT [Concomitant]
  4. NISOLDIPINE [Concomitant]
  5. METOPROLOL SUCCINATE [Concomitant]
  6. LEVOTHYROXINE SODIUM [Concomitant]
  7. CELECOXIB [Concomitant]
  8. SERTRALINE HYDROCHLORIDE [Concomitant]
  9. OMEPRAZOLE [Concomitant]
  10. IRON [Concomitant]
  11. CALCIUM GLUCONATE [Concomitant]

REACTIONS (1)
  - CONJUNCTIVITIS [None]
